FAERS Safety Report 8139139-6 (Version None)
Quarter: 2012Q1

REPORT INFORMATION
  Report Type: 
  Country: None (occurrence: None)
  Receive Date: 20120215
  Receipt Date: 20100201
  Transmission Date: 20120608
  Serious: Yes (Other)
  Sender: FDA-Public Use
  Company Number: JP-MERCK-1003USA00583

PATIENT
  Age: 64 Year
  Sex: Male

DRUGS (2)
  1. PEPCID [Suspect]
     Route: 048
  2. FUNGUARD [Suspect]
     Route: 042

REACTIONS (1)
  - HAEMOLYTIC ANAEMIA [None]
